FAERS Safety Report 17472354 (Version 1)
Quarter: 2020Q1

REPORT INFORMATION
  Report Type: Spontaneous
  Country: US (occurrence: US)
  Receive Date: 20200228
  Receipt Date: 20200228
  Transmission Date: 20200409
  Serious: No
  Sender: FDA-Public Use
  Company Number: US-GLAXOSMITHKLINE-US2020035028

PATIENT
  Age: 86 Year
  Sex: Female

DRUGS (1)
  1. FLONASE [Suspect]
     Active Substance: FLUTICASONE PROPIONATE
     Indication: HYPERSENSITIVITY
     Dosage: UNK, 2 SPRAYS IN EACH NOSTRIL ONCE
     Dates: start: 20200222

REACTIONS (2)
  - Facial pain [Unknown]
  - Headache [Unknown]

NARRATIVE: CASE EVENT DATE: 20200222
